FAERS Safety Report 17648294 (Version 1)
Quarter: 2020Q2

REPORT INFORMATION
  Report Type: Spontaneous
  Country: US (occurrence: US)
  Receive Date: 20200408
  Receipt Date: 20200408
  Transmission Date: 20200713
  Serious: No
  Sender: FDA-Public Use
  Company Number: US-TEVA-2020-US-1219835

PATIENT
  Sex: Male

DRUGS (2)
  1. IMATINIB TEVA [Suspect]
     Active Substance: IMATINIB
     Indication: LEUKAEMIA
     Dosage: 400 MILLIGRAM DAILY;
     Route: 065
     Dates: start: 202002
  2. OMEPRAZOLE (COSTCO) [Concomitant]
     Indication: GASTROOESOPHAGEAL REFLUX DISEASE
     Dosage: 20 MILLIGRAM DAILY; REDDISH BROWN/PINK OBLONG CAPSULE E,67?ONCE A DAY IN AM

REACTIONS (7)
  - Abdominal pain upper [Unknown]
  - Visual impairment [Unknown]
  - Eye swelling [Unknown]
  - Impaired driving ability [Unknown]
  - Abdominal discomfort [Unknown]
  - Product odour abnormal [Unknown]
  - Discomfort [Unknown]
